FAERS Safety Report 4276259-0 (Version None)
Quarter: 2004Q1

REPORT INFORMATION
  Report Type: 
  Country: None (occurrence: None)
  Receive Date: 20040121
  Receipt Date: 20031125
  Transmission Date: 20041129
  Serious: Yes (Life-Threatening)
  Sender: FDA-Public Use
  Company Number: JP-ROCHE-352603

PATIENT
  Age: 75 Year
  Sex: Male

DRUGS (10)
  1. VESANOID [Suspect]
     Indication: ACUTE PROMYELOCYTIC LEUKAEMIA
     Route: 048
     Dates: start: 20031023, end: 20031116
  2. CIPROXAN [Concomitant]
     Indication: UNEVALUABLE EVENT
     Route: 048
     Dates: start: 20031011, end: 20031119
  3. FUNGIZONE [Concomitant]
     Dates: start: 20031011, end: 20031119
  4. GASTER [Concomitant]
     Route: 048
     Dates: start: 20031011, end: 20031119
  5. SELBEX [Concomitant]
     Indication: PROPHYLAXIS
     Route: 048
     Dates: start: 20031011, end: 20031119
  6. DIAZEPAM [Concomitant]
     Route: 048
     Dates: start: 20031011, end: 20031119
  7. NAFTOPIDIL [Concomitant]
     Route: 048
     Dates: start: 20031011, end: 20031119
  8. ZYLORIC [Concomitant]
     Route: 048
     Dates: start: 20031011, end: 20031119
  9. BACTRIM [Concomitant]
     Indication: PROPHYLAXIS
     Route: 048
  10. FOY [Concomitant]
     Route: 048
     Dates: start: 20031023, end: 20031113

REACTIONS (2)
  - DRY MOUTH [None]
  - INTERSTITIAL LUNG DISEASE [None]
